FAERS Safety Report 7399844-6 (Version None)
Quarter: 2011Q2

REPORT INFORMATION
  Report Type: 
  Country: None (occurrence: None)
  Receive Date: 20110407
  Receipt Date: 20110331
  Transmission Date: 20111010
  Serious: Yes (Other)
  Sender: FDA-Public Use
  Company Number: CA-PFIZER INC-2011076092

PATIENT
  Sex: Female

DRUGS (11)
  1. PREDNISONE [Concomitant]
     Dosage: 5 MG, DAILY
  2. PLAQUENIL [Concomitant]
     Dosage: 200 MG, DAILY
  3. FOSAMAX [Concomitant]
     Dosage: 70 MG, WEEKLY
  4. COUMADIN [Concomitant]
     Dosage: 7.5 MG, 4 DAYS OUT OF 7 DAYS
  5. CALCIUM WITH VITAMIN D [Concomitant]
  6. APO-SULFATRIM [Concomitant]
     Dosage: 800 MG, DAILY
  7. PANTOLOC [Suspect]
     Indication: GASTROOESOPHAGEAL REFLUX DISEASE
     Dosage: 40 MG, 2X/DAY
     Dates: start: 20110324
  8. APO-SULFATRIM [Concomitant]
     Dosage: 160 MG, DAILY
  9. SERAX [Concomitant]
     Dosage: 15 MG, AT BEDTIME
  10. COUMADIN [Concomitant]
     Indication: PULMONARY EMBOLISM
     Dosage: 5 MG, 3 DAYS OUT OF 7 DAYS
  11. NORVASC [Concomitant]
     Dosage: 2.5 MG, (PATIENT TAKES IT ONCE IN A WHILE)

REACTIONS (1)
  - CUTANEOUS LUPUS ERYTHEMATOSUS [None]
